FAERS Safety Report 18038829 (Version 1)
Quarter: 2020Q3

REPORT INFORMATION
  Report Type: Spontaneous
  Country: PT (occurrence: US)
  Receive Date: 20200718
  Receipt Date: 20200718
  Transmission Date: 20201103
  Serious: Yes (Hospitalization, Other)
  Sender: FDA-Public Use
  Company Number: PT-AUROBINDO-AUR-APL-2020-034433

PATIENT
  Age: 63 Year
  Sex: Female

DRUGS (1)
  1. ALPRAZOLAM. [Suspect]
     Active Substance: ALPRAZOLAM
     Indication: ANXIETY
     Dosage: 0.5 MILLIGRAM
     Route: 065

REACTIONS (7)
  - Affect lability [Unknown]
  - Impulsive behaviour [Unknown]
  - Small cell lung cancer [Unknown]
  - Flight of ideas [Unknown]
  - Mania [Unknown]
  - Loose associations [Unknown]
  - Pressure of speech [Unknown]
